FAERS Safety Report 9287374 (Version 4)
Quarter: 2013Q2

REPORT INFORMATION
  Report Type: Report from Study
  Country: AR (occurrence: AR)
  Receive Date: 20130514
  Receipt Date: 20130523
  Transmission Date: 20140414
  Serious: Yes (Death, Hospitalization)
  Sender: FDA-Public Use
  Company Number: AR-ROCHE-1220451

PATIENT
  Sex: Female

DRUGS (3)
  1. AVASTIN [Suspect]
     Indication: BREAST CANCER
     Dosage: RECEIVED 2 APPLICATIONS.THE LAST ONE WAS IN FEBRUARY
     Route: 042
     Dates: start: 201212
  2. DOCETAXEL [Concomitant]
     Indication: BREAST CANCER
  3. OPIUM [Concomitant]

REACTIONS (3)
  - Respiratory failure [Fatal]
  - Lung disorder [Recovering/Resolving]
  - Respiratory disorder [Recovering/Resolving]
